FAERS Safety Report 25279449 (Version 2)
Quarter: 2025Q2

REPORT INFORMATION
  Report Type: Spontaneous
  Country: LV (occurrence: LV)
  Receive Date: 20250507
  Receipt Date: 20250514
  Transmission Date: 20250717
  Serious: Yes (Death, Life-Threatening, Hospitalization, Other)
  Sender: JAZZ
  Company Number: LV-JAZZ PHARMACEUTICALS-2025-LV-010092

PATIENT

DRUGS (1)
  1. VYXEOS [Suspect]
     Active Substance: CYTARABINE\DAUNORUBICIN
     Indication: Acute myeloid leukaemia

REACTIONS (4)
  - Death [Fatal]
  - Neutropenia [Recovered/Resolved]
  - Infection [Unknown]
  - Thrombocytopenia [Unknown]
